FAERS Safety Report 10736142 (Version 1)
Quarter: 2015Q1

REPORT INFORMATION
  Report Type: Spontaneous
  Country: US (occurrence: None)
  Receive Date: 20150122
  Receipt Date: 20150122
  Transmission Date: 20150721
  Serious: Yes (Disabling)
  Sender: FDA-Public Use
  Company Number: None

PATIENT
  Age: 44 Year
  Sex: Male
  Weight: 65.77 kg

DRUGS (1)
  1. VENLAFAXINE [Suspect]
     Active Substance: VENLAFAXINE HYDROCHLORIDE
     Indication: GENERALISED ANXIETY DISORDER
     Dosage: 1 CAPSULE, ONCE DAILY, TAKEN BY MOUTH
     Route: 048
     Dates: start: 20150101, end: 20150115

REACTIONS (7)
  - Product substitution issue [None]
  - Product measured potency issue [None]
  - Economic problem [None]
  - Therapeutic response changed [None]
  - Job dissatisfaction [None]
  - Drug effect decreased [None]
  - Anxiety [None]
